FAERS Safety Report 9713785 (Version 1)
Quarter: 2013Q4

REPORT INFORMATION
  Report Type: Spontaneous
  Country: US (occurrence: None)
  Receive Date: 20131122
  Receipt Date: 20131122
  Transmission Date: 20140711
  Serious: Yes (Hospitalization, Other)
  Sender: FDA-Public Use
  Company Number: SYM-2013-12960

PATIENT
  Age: 14 Year
  Sex: Female

DRUGS (3)
  1. BUPROPION HYDROCHLORIDE (BUPROPION HYDROCHLORIDE) (BUPROPION HYDROCHLORIDE) [Suspect]
     Indication: PRODUCT USED FOR UNKNOWN INDICATION
     Route: 048
  2. HYDROXYZINE (HYDROXYZINE) (HYDROXYZINE) [Suspect]
     Indication: PRODUCT USED FOR UNKNOWN INDICATION
     Route: 048
  3. CITALOPRAM (CITALOPRAM) (CITALOPRAM) [Suspect]
     Indication: PRODUCT USED FOR UNKNOWN INDICATION
     Route: 048

REACTIONS (13)
  - Convulsion [None]
  - Hypotension [None]
  - Electrocardiogram QRS complex prolonged [None]
  - Nodal rhythm [None]
  - Hyperlipidaemia [None]
  - Pancreatitis [None]
  - Electrocardiogram QT interval [None]
  - Overdose [None]
  - Blood potassium decreased [None]
  - Metabolic acidosis [None]
  - Respiratory acidosis [None]
  - Blood pressure decreased [None]
  - Cardiogenic shock [None]
